FAERS Safety Report 8565608-0 (Version None)
Quarter: 2012Q3

REPORT INFORMATION
  Report Type: 
  Country: None (occurrence: None)
  Receive Date: 20120803
  Receipt Date: 20120727
  Transmission Date: 20120928
  Serious: Yes (Hospitalization)
  Sender: FDA-Public Use
  Company Number: US-009507513-1207USA011835

PATIENT

DRUGS (7)
  1. LAMIVUDINE [Concomitant]
     Indication: HIV INFECTION
  2. CANCIDAS [Suspect]
     Indication: OESOPHAGITIS
  3. ABACAVIR SULFATE [Concomitant]
     Indication: HIV INFECTION
  4. RALTEGRAVIR [Concomitant]
     Indication: HIV INFECTION
  5. SULFAMETHOXAZOLE AND TRIMETHOPRIM [Concomitant]
  6. CANCIDAS [Suspect]
     Indication: OROPHARYNGEAL CANDIDIASIS
     Route: 042
  7. ETRAVIRINE [Concomitant]
     Indication: HIV INFECTION

REACTIONS (1)
  - DRUG INEFFECTIVE [None]
